FAERS Safety Report 24583061 (Version 1)
Quarter: 2024Q4

REPORT INFORMATION
  Report Type: Spontaneous
  Country: US (occurrence: US)
  Receive Date: 20241106
  Receipt Date: 20241106
  Transmission Date: 20250114
  Serious: Yes (Other)
  Sender: DR REDDYS
  Company Number: US-DRL-USA-LIT/USA/24/0016393

PATIENT
  Age: 51 Year
  Sex: Female

DRUGS (14)
  1. TACROLIMUS [Suspect]
     Active Substance: TACROLIMUS
     Indication: Chronic spontaneous urticaria
     Route: 048
  2. TACROLIMUS [Suspect]
     Active Substance: TACROLIMUS
     Indication: Alopecia universalis
  3. TACROLIMUS [Suspect]
     Active Substance: TACROLIMUS
     Indication: Dermatitis atopic
  4. CYCLOSPORINE [Suspect]
     Active Substance: CYCLOSPORINE
     Indication: Chronic spontaneous urticaria
  5. CYCLOSPORINE [Suspect]
     Active Substance: CYCLOSPORINE
     Indication: Alopecia universalis
  6. CYCLOSPORINE [Suspect]
     Active Substance: CYCLOSPORINE
     Indication: Dermatitis atopic
  7. MONTELUKAST [Suspect]
     Active Substance: MONTELUKAST
     Indication: Angioedema
  8. DAPSONE [Concomitant]
     Active Substance: DAPSONE
     Indication: Chronic spontaneous urticaria
  9. DAPSONE [Concomitant]
     Active Substance: DAPSONE
     Indication: Alopecia universalis
  10. DAPSONE [Concomitant]
     Active Substance: DAPSONE
     Indication: Dermatitis atopic
  11. OMALIZUMAB [Concomitant]
     Active Substance: OMALIZUMAB
     Indication: Chronic spontaneous urticaria
  12. OMALIZUMAB [Concomitant]
     Active Substance: OMALIZUMAB
     Indication: Alopecia universalis
  13. OMALIZUMAB [Concomitant]
     Active Substance: OMALIZUMAB
     Indication: Dermatitis atopic
  14. ALBUTEROL [Concomitant]
     Active Substance: ALBUTEROL
     Indication: Angioedema

REACTIONS (1)
  - Drug ineffective for unapproved indication [Unknown]
